FAERS Safety Report 9645566 (Version 2)
Quarter: 2013Q4

REPORT INFORMATION
  Report Type: Spontaneous
  Country: JP (occurrence: JP)
  Receive Date: 20131025
  Receipt Date: 20131025
  Transmission Date: 20140711
  Serious: Yes (Hospitalization)
  Sender: FDA-Public Use
  Company Number: JP-EISAI INC-E7389-03837-SPO-JP

PATIENT
  Age: 45 Year
  Sex: Female
  Weight: 85 kg

DRUGS (2)
  1. HALAVEN [Suspect]
     Indication: BREAST CANCER RECURRENT
     Dosage: 2.2 MG
     Route: 041
     Dates: start: 20130423, end: 2013
  2. HALAVEN [Suspect]
     Dosage: 2.2 MG
     Route: 041
     Dates: start: 20130930

REACTIONS (7)
  - Chest pain [Recovering/Resolving]
  - Pyrexia [Recovered/Resolved]
  - Malaise [Recovered/Resolved]
  - Abdominal pain [Recovering/Resolving]
  - Back pain [Unknown]
  - Alopecia [Not Recovered/Not Resolved]
  - Diarrhoea [Recovered/Resolved]
